FAERS Safety Report 12681845 (Version 3)
Quarter: 2016Q3

REPORT INFORMATION
  Report Type: Spontaneous
  Country: DE (occurrence: DE)
  Receive Date: 20160824
  Receipt Date: 20160906
  Transmission Date: 20161109
  Serious: Yes (Hospitalization)
  Sender: FDA-Public Use
  Company Number: DE-EMD SERONO-8102523

PATIENT
  Age: 57 Year
  Sex: Female
  Weight: 65 kg

DRUGS (12)
  1. REBIF [Suspect]
     Active Substance: INTERFERON BETA-1A
     Indication: MULTIPLE SCLEROSIS
     Route: 058
     Dates: start: 20081118, end: 20160518
  2. METOPROLOL. [Concomitant]
     Active Substance: METOPROLOL
     Indication: ARRHYTHMIA
     Dosage: 23.75 (UNSPECIFIED UNIT), INCREASED DOSE
     Route: 048
  3. ENEMA                              /01858901/ [Concomitant]
     Indication: PRODUCT USED FOR UNKNOWN INDICATION
     Dosage: DISPOSABLE
  4. KYTTA [Concomitant]
     Active Substance: GLYCOL SALICYLATE
     Indication: PRODUCT USED FOR UNKNOWN INDICATION
  5. DIGITOXIN [Concomitant]
     Active Substance: DIGITOXIN
     Indication: CARDIAC DISORDER
     Route: 048
  6. COLCHICUM [Concomitant]
     Active Substance: COLCHICINE
     Indication: INFLAMMATION
     Dosage: 0.5 (UNSPECIFIED UNIT)
     Route: 048
  7. DULCOLAX (BISACODYL) [Concomitant]
     Active Substance: BISACODYL
     Indication: PRODUCT USED FOR UNKNOWN INDICATION
  8. OPIPRAMOL [Concomitant]
     Active Substance: OPIPRAMOL
     Indication: PRODUCT USED FOR UNKNOWN INDICATION
     Dosage: 100 (UNSPECIFIED UNIT)
  9. PANTOPRAZOLE [Concomitant]
     Active Substance: PANTOPRAZOLE SODIUM
     Indication: PRODUCT USED FOR UNKNOWN INDICATION
     Dosage: 40 (UNSPECIFIED UNIT)
  10. CALCIUM [Concomitant]
     Active Substance: CALCIUM
     Indication: PRODUCT USED FOR UNKNOWN INDICATION
     Dosage: 500 (UNSPECIFIED UNIT)
  11. SODIUM CHLORIDE. [Concomitant]
     Active Substance: SODIUM CHLORIDE
     Indication: PRODUCT USED FOR UNKNOWN INDICATION
     Dosage: 500 (UNSPECIFIED UNIT)
     Route: 042
  12. KATADOLON S [Concomitant]
     Active Substance: FLUPIRTINE
     Indication: PRODUCT USED FOR UNKNOWN INDICATION

REACTIONS (16)
  - Atypical pneumonia [Recovered/Resolved]
  - Pleural effusion [Unknown]
  - Tricuspid valve incompetence [Unknown]
  - Atrial fibrillation [Unknown]
  - Chlamydial infection [Unknown]
  - Oedema peripheral [Unknown]
  - Pericardial effusion [Unknown]
  - Cardiomegaly [Unknown]
  - Lymphadenopathy [Unknown]
  - Weight increased [Unknown]
  - Splenomegaly [Unknown]
  - Nocturia [Unknown]
  - Atelectasis [Unknown]
  - Mitral valve incompetence [Unknown]
  - Lung hyperinflation [Unknown]
  - Hepatic enzyme increased [Unknown]

NARRATIVE: CASE EVENT DATE: 201408
